FAERS Safety Report 7938247-X (Version None)
Quarter: 2011Q4

REPORT INFORMATION
  Report Type: 
  Country: None (occurrence: None)
  Receive Date: 20111123
  Receipt Date: 20111115
  Transmission Date: 20120403
  Serious: Yes (Hospitalization)
  Sender: FDA-Public Use
  Company Number: CHPA2011US015589

PATIENT
  Age: 75 Year
  Sex: Male

DRUGS (1)
  1. MAALOX ANTACID/ANTIGAS RS LIQ COOL MINT [Suspect]
     Indication: ABDOMINAL DISCOMFORT
     Dosage: 2.5 TSP, ONCE/SINGLE
     Route: 048
     Dates: start: 20111104, end: 20111104

REACTIONS (3)
  - CONDITION AGGRAVATED [None]
  - URINARY TRACT INFECTION [None]
  - ABDOMINAL DISCOMFORT [None]
